FAERS Safety Report 9758482 (Version 1)
Quarter: 2013Q4

REPORT INFORMATION
  Report Type: Spontaneous
  Country: US (occurrence: None)
  Receive Date: 20131216
  Receipt Date: 20131216
  Transmission Date: 20140711
  Serious: No
  Sender: FDA-Public Use
  Company Number: CABO-13002400

PATIENT
  Age: 38 Year
  Sex: Female

DRUGS (1)
  1. COMETRIQ [Suspect]
     Indication: MEDULLARY THYROID CANCER
     Dosage: 140 MG, QD, ORAL?100 MG, QD, ORAL

REACTIONS (6)
  - Gingival bleeding [None]
  - Oedema peripheral [None]
  - Pain in extremity [None]
  - Stomatitis [None]
  - Rash [None]
  - Diarrhoea [None]
